FAERS Safety Report 10396279 (Version 1)
Quarter: 2014Q3

REPORT INFORMATION
  Report Type: Spontaneous
  Country: US (occurrence: US)
  Receive Date: 20140820
  Receipt Date: 20140820
  Transmission Date: 20150326
  Serious: No
  Sender: FDA-Public Use
  Company Number: US-ASTRAZENECA-2014SE58780

PATIENT
  Age: 64 Year
  Sex: Female
  Weight: 85.7 kg

DRUGS (13)
  1. TOPROL XL [Suspect]
     Active Substance: METOPROLOL SUCCINATE
     Indication: CARDIAC OPERATION
     Route: 048
     Dates: start: 1997
  2. TOPROL XL [Suspect]
     Active Substance: METOPROLOL SUCCINATE
     Indication: VASCULAR GRAFT
     Route: 048
     Dates: start: 1997
  3. METOPROLOL [Suspect]
     Active Substance: METOPROLOL
     Indication: CARDIAC OPERATION
     Dosage: GENERIC
     Route: 048
  4. METOPROLOL [Suspect]
     Active Substance: METOPROLOL
     Indication: CARDIAC OPERATION
     Dosage: GENERIC
     Route: 048
  5. TOPROL XL [Suspect]
     Active Substance: METOPROLOL SUCCINATE
     Indication: VASCULAR GRAFT
     Route: 048
  6. TOPROL XL [Suspect]
     Active Substance: METOPROLOL SUCCINATE
     Indication: VASCULAR GRAFT
     Route: 048
     Dates: start: 1997
  7. TOPROL XL [Suspect]
     Active Substance: METOPROLOL SUCCINATE
     Indication: CARDIAC OPERATION
     Route: 048
     Dates: start: 1997
  8. TOPROL XL [Suspect]
     Active Substance: METOPROLOL SUCCINATE
     Indication: CARDIAC OPERATION
     Route: 048
  9. METOPROLOL [Suspect]
     Active Substance: METOPROLOL
     Indication: VASCULAR GRAFT
     Dosage: GENERIC
     Route: 048
  10. MELOXICAM. [Concomitant]
     Active Substance: MELOXICAM
     Indication: ARTHRITIS
     Route: 048
     Dates: start: 2012
  11. BENAZEPRIL [Concomitant]
     Active Substance: BENAZEPRIL\BENAZEPRIL HYDROCHLORIDE
     Indication: CARDIAC DISORDER
     Route: 048
     Dates: start: 1997
  12. METOPROLOL [Suspect]
     Active Substance: METOPROLOL
     Indication: VASCULAR GRAFT
     Dosage: GENERIC
     Route: 048
  13. METFORMIN [Concomitant]
     Active Substance: METFORMIN HYDROCHLORIDE
     Indication: DIABETES MELLITUS
     Dates: start: 2011

REACTIONS (7)
  - Off label use [Not Recovered/Not Resolved]
  - Diabetes mellitus [Unknown]
  - Adverse event [Not Recovered/Not Resolved]
  - Ulcer [Unknown]
  - Drug intolerance [Not Recovered/Not Resolved]
  - Asthenia [Unknown]
  - Dizziness [Unknown]

NARRATIVE: CASE EVENT DATE: 2011
